FAERS Safety Report 13237742 (Version 8)
Quarter: 2021Q2

REPORT INFORMATION
  Report Type: Other
  Country: US (occurrence: US)
  Receive Date: 20170216
  Receipt Date: 20210504
  Transmission Date: 20210716
  Serious: Yes (Death, Other)
  Sender: FDA-Public Use
  Company Number: US-ROCHE-1890495

PATIENT

DRUGS (3)
  1. IBRUTINIB [Suspect]
     Active Substance: IBRUTINIB
     Indication: DIFFUSE LARGE B-CELL LYMPHOMA REFRACTORY
     Route: 048
  2. LENALIDOMIDE [Suspect]
     Active Substance: LENALIDOMIDE
     Indication: DIFFUSE LARGE B-CELL LYMPHOMA REFRACTORY
     Dosage: ON D1?21 OF EACH 28?DAY CYCLE
     Route: 065
  3. RITUXIMAB. [Suspect]
     Active Substance: RITUXIMAB
     Indication: DIFFUSE LARGE B-CELL LYMPHOMA REFRACTORY
     Dosage: ON DAY 1 OF EACH 28?DAY CYCLE FOR 6 CYCLES
     Route: 042

REACTIONS (12)
  - Anaemia [Unknown]
  - Febrile neutropenia [Unknown]
  - Hypokalaemia [Unknown]
  - Rash [Unknown]
  - Cardiac arrest [Fatal]
  - Diffuse large B-cell lymphoma [Fatal]
  - Salmonella sepsis [Unknown]
  - Atrial fibrillation [Unknown]
  - Myelosuppression [Unknown]
  - Thrombocytopenia [Unknown]
  - Rash maculo-papular [Unknown]
  - Neutropenia [Unknown]
